FAERS Safety Report 25755210 (Version 4)
Quarter: 2025Q4

REPORT INFORMATION
  Report Type: Spontaneous
  Country: EU (occurrence: EU)
  Receive Date: 20250903
  Receipt Date: 20251006
  Transmission Date: 20260118
  Serious: Yes (Other)
  Sender: CELLTRION
  Company Number: EU-SAMSUNG BIOEPIS-SB-2025-28600

PATIENT

DRUGS (3)
  1. INFLIXIMAB [Suspect]
     Active Substance: INFLIXIMAB
     Indication: Crohn^s disease
     Dosage: UNK
  2. USTEKINUMAB [Suspect]
     Active Substance: USTEKINUMAB
     Indication: Crohn^s disease
  3. MESALAMINE [Suspect]
     Active Substance: MESALAMINE
     Indication: Crohn^s disease

REACTIONS (6)
  - Cardiomyopathy [Unknown]
  - Pulmonary hypertension [Unknown]
  - Hepatic cirrhosis [Unknown]
  - Embolism [Unknown]
  - Interstitial lung disease [Unknown]
  - Drug intolerance [Unknown]
